FAERS Safety Report 13063304 (Version 2)
Quarter: 2017Q1

REPORT INFORMATION
  Report Type: Report from Study
  Country: None (occurrence: US)
  Receive Date: 20161227
  Receipt Date: 20170208
  Transmission Date: 20170428
  Serious: Yes (Hospitalization)
  Sender: FDA-Public Use
  Company Number: US-ABBVIE-16K-163-1816710-00

PATIENT
  Age: 71 Year
  Sex: Female

DRUGS (3)
  1. METOPROLOL TARTRATE. [Concomitant]
     Active Substance: METOPROLOL TARTRATE
     Indication: PRODUCT USED FOR UNKNOWN INDICATION
     Dosage: 50 MG TWICE A DAY
     Dates: start: 2010
  2. AMLODIPINE [Concomitant]
     Active Substance: AMLODIPINE BESYLATE
     Indication: PRODUCT USED FOR UNKNOWN INDICATION
     Dosage: 10MG TWICE A DAY
     Dates: start: 2010
  3. HUMIRA [Suspect]
     Active Substance: ADALIMUMAB
     Indication: CROHN^S DISEASE
     Route: 058
     Dates: start: 2012

REACTIONS (8)
  - Viral infection [Recovered/Resolved]
  - Nausea [Recovered/Resolved]
  - Blood sodium decreased [Recovered/Resolved]
  - Headache [Recovered/Resolved]
  - Hepatic enzyme increased [Unknown]
  - Hypertension [Unknown]
  - Vomiting [Recovered/Resolved]
  - Electrolyte imbalance [Recovered/Resolved]

NARRATIVE: CASE EVENT DATE: 2016
